FAERS Safety Report 4274669-9 (Version None)
Quarter: 2004Q1

REPORT INFORMATION
  Report Type: 
  Country: None (occurrence: None)
  Receive Date: 20040120
  Receipt Date: 20031023
  Transmission Date: 20041129
  Serious: Yes (Hospitalization)
  Sender: FDA-Public Use
  Company Number: PHEH2003US09775

PATIENT
  Age: 58 Year
  Sex: Female

DRUGS (1)
  1. ZELNORM [Suspect]
     Indication: IRRITABLE BOWEL SYNDROME
     Dosage: 6 MG, BID
     Route: 048
     Dates: start: 20031013, end: 20031020

REACTIONS (10)
  - ABDOMINAL PAIN [None]
  - COLITIS ISCHAEMIC [None]
  - COLON ADENOMA [None]
  - COLONIC POLYP [None]
  - DIVERTICULUM [None]
  - HAEMATOCHEZIA [None]
  - HAEMORRHOIDS [None]
  - MUCOSAL HAEMORRHAGE [None]
  - MUCOSAL INFLAMMATION [None]
  - RECTAL HAEMORRHAGE [None]
